FAERS Safety Report 18915914 (Version 1)
Quarter: 2021Q1

REPORT INFORMATION
  Report Type: Spontaneous
  Country: US (occurrence: US)
  Receive Date: 20210219
  Receipt Date: 20210219
  Transmission Date: 20210420
  Serious: Yes (Other)
  Sender: FDA-Public Use
  Company Number: US-NOVEN PHARMACEUTICALS, INC.-2021US001268

PATIENT
  Sex: Female
  Weight: 63.49 kg

DRUGS (4)
  1. ADDERALL [Concomitant]
     Active Substance: AMPHETAMINE ASPARTATE\AMPHETAMINE SULFATE\DEXTROAMPHETAMINE SACCHARATE\DEXTROAMPHETAMINE SULFATE
     Indication: PSYCHOMOTOR HYPERACTIVITY
     Dosage: UNK
  2. COMBIPATCH [Suspect]
     Active Substance: ESTRADIOL\NORETHINDRONE ACETATE
     Indication: HOT FLUSH
     Dosage: 0.05/0.14 MG, UNK
     Route: 062
     Dates: end: 20210209
  3. COMBIPATCH [Suspect]
     Active Substance: ESTRADIOL\NORETHINDRONE ACETATE
     Indication: BLOOD OESTROGEN ABNORMAL
     Dosage: 0.05/0.25 MG, UNK
     Route: 062
     Dates: start: 2020
  4. FLONASE [Concomitant]
     Active Substance: FLUTICASONE PROPIONATE
     Indication: HYPERSENSITIVITY
     Dosage: UNK, PRN

REACTIONS (12)
  - Headache [Unknown]
  - Memory impairment [Not Recovered/Not Resolved]
  - Meniscus injury [Unknown]
  - Affect lability [Not Recovered/Not Resolved]
  - Feeling abnormal [Unknown]
  - Bone pain [Unknown]
  - Meniscus cyst [Unknown]
  - Fatigue [Unknown]
  - Paraesthesia [Unknown]
  - Arthralgia [Unknown]
  - Pain [Unknown]
  - Menorrhagia [Unknown]
